FAERS Safety Report 25088906 (Version 1)
Quarter: 2025Q1

REPORT INFORMATION
  Report Type: Spontaneous
  Country: SG (occurrence: SG)
  Receive Date: 20250318
  Receipt Date: 20250318
  Transmission Date: 20250409
  Serious: Yes (Hospitalization, Other)
  Sender: ELITE
  Company Number: SG-ELITEPHARMA-2025ELLIT00050

PATIENT
  Age: 83 Year
  Sex: Female

DRUGS (2)
  1. METHOTREXATE [Suspect]
     Active Substance: METHOTREXATE
     Indication: Segmented hyalinising vasculitis
     Route: 065
  2. METHOTREXATE [Suspect]
     Active Substance: METHOTREXATE
     Indication: Segmented hyalinising vasculitis

REACTIONS (6)
  - Ulcer haemorrhage [Unknown]
  - Pancytopenia [Recovered/Resolved]
  - Acute kidney injury [Unknown]
  - Herpes simplex [Unknown]
  - Blister [Unknown]
  - Stomatitis [Recovered/Resolved]
